FAERS Safety Report 21657778 (Version 1)
Quarter: 2022Q4

REPORT INFORMATION
  Report Type: Spontaneous
  Country: ES (occurrence: ES)
  Receive Date: 20221129
  Receipt Date: 20221129
  Transmission Date: 20230112
  Serious: Yes (Other)
  Sender: FDA-Public Use
  Company Number: None

PATIENT
  Age: 67 Year
  Sex: Male

DRUGS (1)
  1. IOPAMIRO [Suspect]
     Active Substance: IOPAMIDOL
     Indication: Computerised tomogram
     Dosage: 125 ML, SINGLE
     Route: 042
     Dates: start: 20220228, end: 20220228

REACTIONS (1)
  - Sialoadenitis [Recovered/Resolved]

NARRATIVE: CASE EVENT DATE: 20220302
